FAERS Safety Report 6836878-1 (Version None)
Quarter: 2010Q3

REPORT INFORMATION
  Report Type: 
  Country: None (occurrence: None)
  Receive Date: 20100713
  Receipt Date: 20070501
  Transmission Date: 20110219
  Serious: No
  Sender: FDA-Public Use
  Company Number: US-PFIZER INC-2007036202

PATIENT
  Sex: Female
  Weight: 43 kg

DRUGS (4)
  1. CHANTIX [Suspect]
     Indication: SMOKING CESSATION THERAPY
     Route: 048
     Dates: start: 20070320
  2. LISINOPRIL [Concomitant]
     Indication: BLOOD PRESSURE ABNORMAL
  3. COMBIVENT [Concomitant]
     Route: 055
  4. AMITRIPTYLINE HYDROCHLORIDE [Concomitant]

REACTIONS (1)
  - DYSPNOEA [None]
